FAERS Safety Report 9903761 (Version 2)
Quarter: 2014Q1

REPORT INFORMATION
  Report Type: Report from Study
  Country: US (occurrence: US)
  Receive Date: 20140218
  Receipt Date: 20140225
  Transmission Date: 20141002
  Serious: Yes (Hospitalization)
  Sender: FDA-Public Use
  Company Number: US-ROCHE-1346873

PATIENT
  Age: 59 Year
  Sex: Female
  Weight: 81 kg

DRUGS (11)
  1. XOLAIR [Suspect]
     Indication: ASTHMA
     Route: 058
  2. ALBUTEROL [Concomitant]
     Dosage: AS REQUIRED
     Route: 065
  3. ALBUTEROL [Concomitant]
     Route: 065
  4. SYNTHROID [Concomitant]
     Route: 048
  5. OMEPRAZOLE [Concomitant]
     Route: 065
  6. SYMBICORT [Concomitant]
     Dosage: 2 PUFF
     Route: 065
  7. SINGULAR [Concomitant]
     Dosage: 1 TAB IN THE EVENING
     Route: 065
  8. PREDNISONE [Concomitant]
  9. ZOCOR [Concomitant]
  10. METFORMIN [Concomitant]
     Route: 065
  11. DIOVAN [Concomitant]

REACTIONS (5)
  - Asthma [Recovered/Resolved]
  - Weight decreased [Unknown]
  - Nasal turbinate abnormality [Unknown]
  - Cough [Unknown]
  - Nasal oedema [Unknown]
